FAERS Safety Report 13196240 (Version 1)
Quarter: 2017Q1

REPORT INFORMATION
  Report Type: Spontaneous
  Country: US (occurrence: US)
  Receive Date: 20170208
  Receipt Date: 20170208
  Transmission Date: 20170428
  Serious: No
  Sender: FDA-Public Use
  Company Number: US-PFIZER INC-2017045721

PATIENT
  Sex: Male

DRUGS (1)
  1. PRISTIQ EXTENDED-RELEASE [Suspect]
     Active Substance: DESVENLAFAXINE SUCCINATE
     Dosage: UNK

REACTIONS (5)
  - Alopecia [Unknown]
  - Rash macular [Not Recovered/Not Resolved]
  - Visual impairment [Unknown]
  - Bite [Not Recovered/Not Resolved]
  - Pruritus [Not Recovered/Not Resolved]
